FAERS Safety Report 18852604 (Version 1)
Quarter: 2021Q1

REPORT INFORMATION
  Report Type: Report from Study
  Country: CA (occurrence: CA)
  Receive Date: 20210205
  Receipt Date: 20210205
  Transmission Date: 20210420
  Serious: Yes (Other)
  Sender: FDA-Public Use
  Company Number: CA-TAKEDA-2019TUS069350

PATIENT
  Age: 72 Year
  Sex: Male

DRUGS (17)
  1. ENTOCORT [Concomitant]
     Active Substance: BUDESONIDE
     Dosage: 2.3 MILLIGRAM
  2. BUDESONIDE. [Concomitant]
     Active Substance: BUDESONIDE
     Dosage: 0.02 MILLIGRAM
     Route: 054
  3. VEDOLIZUMAB [Suspect]
     Active Substance: VEDOLIZUMAB
     Dosage: 300 MILLIGRAM, Q4WEEKS
     Route: 042
     Dates: start: 20191210
  4. INDAPAMIDE. [Concomitant]
     Active Substance: INDAPAMIDE
     Indication: HYPERTENSION
     Dosage: UNK
  5. SALOFALK                           /00000301/ [Concomitant]
     Active Substance: AMINOSALICYLIC ACID
     Dosage: 4 GRAM, QD
  6. PENTASA [Concomitant]
     Active Substance: MESALAMINE
     Dosage: UNK (500 MG TABL X 8 TAB)
  7. CORTIMENT                          /00028601/ [Concomitant]
     Active Substance: HYDROCORTISONE
     Dosage: 9 MILLIGRAM
  8. SIMVASTATIN. [Concomitant]
     Active Substance: SIMVASTATIN
     Dosage: 40 MILLIGRAM, QD
     Route: 048
  9. VEDOLIZUMAB [Suspect]
     Active Substance: VEDOLIZUMAB
     Dosage: 300 MILLIGRAM, Q4WEEKS
     Route: 042
  10. CORTIFOAM [Concomitant]
     Active Substance: HYDROCORTISONE ACETATE
     Dosage: UNK, QD
  11. COVERSYL PLUS                      /01421201/ [Concomitant]
     Active Substance: INDAPAMIDE\PERINDOPRIL ERBUMINE
     Dosage: UNK
  12. PENTASA [Concomitant]
     Active Substance: MESALAMINE
     Dosage: 4 MILLIGRAM, QD
  13. DENOSUMAB [Concomitant]
     Active Substance: DENOSUMAB
     Indication: BONE LOSS
     Dosage: UNK
  14. PARIET EC [Concomitant]
     Dosage: 20 MILLIGRAM, QD
     Route: 048
  15. PRADAXA [Concomitant]
     Active Substance: DABIGATRAN ETEXILATE MESYLATE
     Dosage: 110 MILLIGRAM, BID
     Route: 048
  16. VEDOLIZUMAB [Suspect]
     Active Substance: VEDOLIZUMAB
     Indication: CROHN^S DISEASE
     Dosage: 300 MILLIGRAM
     Route: 042
     Dates: start: 20190214
  17. DEXILANT [Suspect]
     Active Substance: DEXLANSOPRAZOLE
     Indication: PRODUCT USED FOR UNKNOWN INDICATION
     Dosage: 60 MILLIGRAM, QD
     Route: 048

REACTIONS (6)
  - Diarrhoea [Unknown]
  - Off label use [Unknown]
  - Chills [Recovered/Resolved]
  - Haematochezia [Unknown]
  - Gastrointestinal disorder [Unknown]
  - Gastrointestinal inflammation [Unknown]

NARRATIVE: CASE EVENT DATE: 20191107
